FAERS Safety Report 6682482-8 (Version None)
Quarter: 2010Q2

REPORT INFORMATION
  Report Type: 
  Country: None (occurrence: None)
  Receive Date: 20100415
  Receipt Date: 20100409
  Transmission Date: 20101027
  Serious: Yes (Death, Hospitalization, Other)
  Sender: FDA-Public Use
  Company Number: PHHY2010IN13287

PATIENT
  Age: 54 Year
  Sex: Male

DRUGS (5)
  1. SEBIVO [Suspect]
     Indication: HEPATITIS B
     Dosage: 600 MG
     Route: 048
  2. DIALYSIS [Concomitant]
  3. ANTIBIOTICS [Concomitant]
     Route: 042
  4. OMEPRAZOLE [Concomitant]
  5. EPOGEN [Concomitant]

REACTIONS (3)
  - ASCITES [None]
  - NOSOCOMIAL INFECTION [None]
  - RENAL FAILURE CHRONIC [None]
